FAERS Safety Report 9082746 (Version 2)
Quarter: 2013Q3

REPORT INFORMATION
  Report Type: Spontaneous
  Country: IT (occurrence: IT)
  Receive Date: 20130131
  Receipt Date: 20130809
  Transmission Date: 20140515
  Serious: Yes (Other)
  Sender: FDA-Public Use
  Company Number: IT-009507513-1301ITA013282

PATIENT
  Age: 59 Year
  Sex: Female

DRUGS (2)
  1. ALENDRONATE SODIUM [Suspect]
     Indication: BREAST CANCER
     Dosage: UNK, QW
     Route: 048
     Dates: start: 20100601, end: 20110301
  2. ZOMETA [Suspect]
     Indication: BREAST CANCER
     Dosage: 4 MG, QM
     Route: 042
     Dates: start: 20110301, end: 20111101

REACTIONS (1)
  - Osteonecrosis [Recovering/Resolving]
